FAERS Safety Report 5891801-1 (Version None)
Quarter: 2008Q3

REPORT INFORMATION
  Report Type: 
  Country: None (occurrence: None)
  Receive Date: 20080922
  Receipt Date: 20080911
  Transmission Date: 20090109
  Serious: Yes (Death, Hospitalization)
  Sender: FDA-Public Use
  Company Number: CA-ELI_LILLY_AND_COMPANY-CA200809004178

PATIENT
  Sex: Female

DRUGS (2)
  1. ZYPREXA [Suspect]
  2. RISPERDAL [Concomitant]

REACTIONS (2)
  - OVERDOSE [None]
  - PNEUMONIA [None]
